FAERS Safety Report 19034632 (Version 1)
Quarter: 2021Q1

REPORT INFORMATION
  Report Type: Other
  Country: US (occurrence: US)
  Receive Date: 20210319
  Receipt Date: 20210319
  Transmission Date: 20210420
  Serious: Yes (Hospitalization)
  Sender: FDA-Public Use
  Company Number: US-B.BRAUN MEDICAL INC.-2108235

PATIENT
  Age: 29 Year
  Sex: Female

DRUGS (3)
  1. SODIUM BICARBONATE. [Concomitant]
     Active Substance: SODIUM BICARBONATE
  2. MAGNESIUM [Suspect]
     Active Substance: MAGNESIUM
     Route: 042
  3. ISOPROTERENOL. [Concomitant]
     Active Substance: ISOPROTERENOL

REACTIONS (1)
  - Drug ineffective [None]
